FAERS Safety Report 13547487 (Version 1)
Quarter: 2017Q2

REPORT INFORMATION
  Report Type: Spontaneous
  Country: US (occurrence: US)
  Receive Date: 20170515
  Receipt Date: 20170515
  Transmission Date: 20170830
  Serious: Yes (Hospitalization)
  Sender: FDA-Public Use
  Company Number: US-VIFOR (INTERNATIONAL) INC.-VIT-2017-05174

PATIENT
  Sex: Female

DRUGS (31)
  1. VELTASSA [Suspect]
     Active Substance: PATIROMER
     Indication: HYPERKALAEMIA
     Route: 048
     Dates: start: 20161028
  2. TRAMADOL HYDROCHLORIDE. [Concomitant]
     Active Substance: TRAMADOL HYDROCHLORIDE
  3. PANTOPRAZOLE SODIUM SESQUIHYDRATE [Concomitant]
     Active Substance: PANTOPRAZOLE SODIUM
  4. MIDODRINE HYDROCHLORIDE. [Concomitant]
     Active Substance: MIDODRINE HYDROCHLORIDE
  5. LANTUS [Concomitant]
     Active Substance: INSULIN GLARGINE
  6. FLONASE [Concomitant]
     Active Substance: FLUTICASONE PROPIONATE
  7. BETAMETHASONE/CLOTRIMOXAZOLE [Concomitant]
  8. PARACETAMOL [Concomitant]
     Active Substance: ACETAMINOPHEN
  9. RENVELA [Concomitant]
     Active Substance: SEVELAMER CARBONATE
  10. PROAIR HFA [Concomitant]
     Active Substance: ALBUTEROL SULFATE
  11. LEVODOPA/CARBIDOPA [Concomitant]
  12. ARTIFICIAL TEARS [Concomitant]
     Active Substance: GLYCERIN\HYPROMELLOSES\POLYETHYLENE GLYCOL 400
  13. WARFARIN SODIUM. [Concomitant]
     Active Substance: WARFARIN SODIUM
  14. SERTRALINE HYDROCHLORIDE. [Concomitant]
     Active Substance: SERTRALINE HYDROCHLORIDE
  15. BIOFREEZE [Concomitant]
     Active Substance: MENTHOL
  16. SENSIPAR [Concomitant]
     Active Substance: CINACALCET HYDROCHLORIDE
  17. NITROSTAT [Concomitant]
     Active Substance: NITROGLYCERIN
  18. METAMUCIL [Concomitant]
     Active Substance: PLANTAGO SEED
  19. ATROPINE SULFATE/DIPHENOXYLATE [Concomitant]
  20. CALCIUM ACETATE. [Concomitant]
     Active Substance: CALCIUM ACETATE
  21. MI-ACID [Concomitant]
  22. LIDOCAINE/PROCAINE [Concomitant]
  23. KIONEX [Concomitant]
     Active Substance: SODIUM POLYSTYRENE SULFONATE
  24. AMITIZA [Concomitant]
     Active Substance: LUBIPROSTONE
  25. ANTI DIARRHEAL [Concomitant]
     Active Substance: LOPERAMIDE HYDROCHLORIDE
  26. LYRICA [Concomitant]
     Active Substance: PREGABALIN
  27. TRAZODONE HYDROCHLORIDE. [Concomitant]
     Active Substance: TRAZODONE HYDROCHLORIDE
  28. NATURAL BALANCE TEARS [Concomitant]
     Active Substance: HYPROMELLOSE 2910 (3 MPA.S)
  29. RENAL [Concomitant]
  30. LEVOTHYROXINE SODIUM. [Concomitant]
     Active Substance: LEVOTHYROXINE SODIUM
  31. HUMALOG [Concomitant]
     Active Substance: INSULIN LISPRO

REACTIONS (2)
  - Drug dose omission [Unknown]
  - Adverse reaction [Unknown]

NARRATIVE: CASE EVENT DATE: 2017
